FAERS Safety Report 12240240 (Version 4)
Quarter: 2016Q4

REPORT INFORMATION
  Report Type: Report from Study
  Country: US (occurrence: US)
  Receive Date: 20160405
  Receipt Date: 20161018
  Transmission Date: 20170207
  Serious: Yes (Hospitalization, Other)
  Sender: FDA-Public Use
  Company Number: US-BIOGEN-2016BI00214024

PATIENT
  Age: 39 Year
  Sex: Female

DRUGS (2)
  1. AVONEX [Suspect]
     Active Substance: INTERFERON BETA-1A
     Indication: RELAPSING-REMITTING MULTIPLE SCLEROSIS
     Route: 030
     Dates: start: 20160324, end: 20160911
  2. AVONEX [Suspect]
     Active Substance: INTERFERON BETA-1A
     Indication: MULTIPLE SCLEROSIS
     Route: 030
     Dates: start: 20050217, end: 20110408

REACTIONS (15)
  - Myocardial infarction [Recovered/Resolved with Sequelae]
  - Pelvic venous thrombosis [Unknown]
  - Angiopathy [Unknown]
  - Diabetic neuropathy [Unknown]
  - Peripheral arterial occlusive disease [Unknown]
  - Blood cholesterol increased [Unknown]
  - Coagulopathy [Unknown]
  - Angina pectoris [Unknown]
  - Hypertension [Unknown]
  - Nasopharyngitis [Recovered/Resolved]
  - Nausea [Recovered/Resolved]
  - Multiple sclerosis [Not Recovered/Not Resolved]
  - Coronary artery disease [Unknown]
  - Intracardiac thrombus [Recovered/Resolved]
  - Vascular stenosis [Unknown]

NARRATIVE: CASE EVENT DATE: 200502
